FAERS Safety Report 14922494 (Version 2)
Quarter: 2018Q2

REPORT INFORMATION
  Report Type: Spontaneous
  Country: US (occurrence: US)
  Receive Date: 20180522
  Receipt Date: 20180621
  Transmission Date: 20180711
  Serious: No
  Sender: FDA-Public Use
  Company Number: US-PFIZER INC-2018207521

PATIENT
  Age: 65 Year
  Sex: Female

DRUGS (1)
  1. IBRANCE [Suspect]
     Active Substance: PALBOCICLIB
     Indication: OESTROGEN RECEPTOR ASSAY POSITIVE
     Dosage: 125 MG, CYCLIC (TAKE 1 CAPSULE BY MOUTH (DAILY ON DAYS 1-21 EVERY 28 DAYS)
     Route: 048

REACTIONS (4)
  - Rash [Unknown]
  - White blood cell count decreased [Not Recovered/Not Resolved]
  - Bone pain [Unknown]
  - Ill-defined disorder [Not Recovered/Not Resolved]
